FAERS Safety Report 25939031 (Version 3)
Quarter: 2025Q4

REPORT INFORMATION
  Report Type: Report from Study
  Country: EU (occurrence: EU)
  Receive Date: 20251019
  Receipt Date: 20251129
  Transmission Date: 20260118
  Serious: Yes (Hospitalization)
  Sender: ABBVIE
  Company Number: EU-ABBVIE-6507051

PATIENT
  Age: 33 Year
  Sex: Male
  Weight: 78 kg

DRUGS (2)
  1. FOSCARBIDOPA\FOSLEVODOPA [Suspect]
     Active Substance: FOSCARBIDOPA\FOSLEVODOPA
     Indication: Parkinson^s disease
     Dosage: DURATION OF THE DAILY INFUSION: 24 HOURS?BASIC FLOW 0.34 ML/H DURATION 16 HOURS IN NIGHT?LOW ALTE...
     Route: 058
     Dates: start: 20250513
  2. FOSCARBIDOPA\FOSLEVODOPA [Suspect]
     Active Substance: FOSCARBIDOPA\FOSLEVODOPA
     Dosage: DURATION OF THE DAILY INFUSION: 24 HOURS?BASIC FLOW 0.34 ML/H DURATION 16 HOURS IN MORNING ?LOW A...
     Route: 058
     Dates: start: 20250520

REACTIONS (1)
  - Asthma [Recovered/Resolved]

NARRATIVE: CASE EVENT DATE: 20251003
